FAERS Safety Report 14678833 (Version 1)
Quarter: 2018Q1

REPORT INFORMATION
  Report Type: Report from Study
  Country: US (occurrence: US)
  Receive Date: 20180326
  Receipt Date: 20180326
  Transmission Date: 20180509
  Serious: Yes (Other)
  Sender: FDA-Public Use
  Company Number: US-ROCHE-2095335

PATIENT
  Sex: Male
  Weight: 35.3 kg

DRUGS (6)
  1. NUTROPIN AQ [Suspect]
     Active Substance: SOMATROPIN
     Dosage: EVERY NIGHT
     Route: 058
     Dates: start: 20130717
  2. NUTROPIN AQ [Suspect]
     Active Substance: SOMATROPIN
     Dosage: EVERY NIGHT
     Route: 058
     Dates: end: 20130717
  3. SYNTHROID [Concomitant]
     Active Substance: LEVOTHYROXINE SODIUM
     Dosage: EVERY DAY
     Route: 048
  4. SYNTHROID [Concomitant]
     Active Substance: LEVOTHYROXINE SODIUM
     Route: 048
  5. NUTROPIN AQ [Suspect]
     Active Substance: SOMATROPIN
     Route: 058
  6. NUTROPIN AQ [Suspect]
     Active Substance: SOMATROPIN
     Indication: HYPOPITUITARISM
     Dosage: EVERY NIGHT
     Route: 058

REACTIONS (15)
  - Anxiety [Unknown]
  - Ill-defined disorder [Unknown]
  - Learning disorder [Unknown]
  - Chest discomfort [Unknown]
  - Weight decreased [Unknown]
  - Pyrexia [Unknown]
  - Winged scapula [Unknown]
  - Wheezing [Unknown]
  - Dyspnoea exertional [Unknown]
  - Oropharyngeal pain [Recovered/Resolved]
  - Scoliosis [Unknown]
  - Constipation [Unknown]
  - Diarrhoea [Unknown]
  - Headache [Recovered/Resolved]
  - Respiratory tract infection [Unknown]
